FAERS Safety Report 17624420 (Version 6)
Quarter: 2020Q2

REPORT INFORMATION
  Report Type: Spontaneous
  Country: PK (occurrence: PK)
  Receive Date: 20200403
  Receipt Date: 20200527
  Transmission Date: 20200713
  Serious: Yes (Other)
  Sender: FDA-Public Use
  Company Number: PK-PFIZER INC-2020137765

PATIENT
  Age: 35 Year
  Sex: Female
  Weight: 65 kg

DRUGS (3)
  1. PARACETAMOL [Concomitant]
     Active Substance: ACETAMINOPHEN
     Dosage: UNK
  2. MERONEM [Suspect]
     Active Substance: MEROPENEM
     Indication: TYPHOID FEVER
     Dosage: 1 G, 3X/DAY
     Route: 042
     Dates: start: 20200322
  3. PANDOL [Concomitant]
     Active Substance: HALOPERIDOL
     Dosage: 500 MG, 2X/DAY

REACTIONS (10)
  - Typhoid fever [Not Recovered/Not Resolved]
  - Off label use [Unknown]
  - Cough [Not Recovered/Not Resolved]
  - Pain [Unknown]
  - Asthenia [Unknown]
  - Condition aggravated [Not Recovered/Not Resolved]
  - Vomiting [Not Recovered/Not Resolved]
  - Feeling cold [Unknown]
  - Suspected counterfeit product [Unknown]
  - Product use in unapproved indication [Unknown]

NARRATIVE: CASE EVENT DATE: 20200322
